FAERS Safety Report 12789741 (Version 2)
Quarter: 2016Q4

REPORT INFORMATION
  Report Type: Spontaneous
  Country: US (occurrence: US)
  Receive Date: 20160928
  Receipt Date: 20161215
  Transmission Date: 20170207
  Serious: Yes (Death, Hospitalization)
  Sender: FDA-Public Use
  Company Number: US-ELI_LILLY_AND_COMPANY-US201609007758

PATIENT
  Age: 42 Year
  Sex: Female

DRUGS (1)
  1. ADCIRCA [Suspect]
     Active Substance: TADALAFIL
     Indication: COR PULMONALE CHRONIC
     Dosage: 40 MG, QD
     Route: 048
     Dates: start: 20140825

REACTIONS (2)
  - Acute hepatic failure [Unknown]
  - Death [Fatal]

NARRATIVE: CASE EVENT DATE: 20160917
